FAERS Safety Report 15301681 (Version 1)
Quarter: 2018Q3

REPORT INFORMATION
  Report Type: Report from Study
  Country: US (occurrence: US)
  Receive Date: 20180821
  Receipt Date: 20180821
  Transmission Date: 20181010
  Serious: Yes (Hospitalization, Other)
  Sender: FDA-Public Use
  Company Number: US-PFIZER INC-2018334345

PATIENT
  Age: 59 Year
  Sex: Female

DRUGS (5)
  1. PROGRAF [Interacting]
     Active Substance: TACROLIMUS\TACROLIMUS ANHYDROUS
     Dosage: 0.5 MG, 2X/DAY
     Route: 048
  2. DIFLUCAN [Suspect]
     Active Substance: FLUCONAZOLE
     Indication: FUNGAL INFECTION
     Dosage: 200 MG, 2X/DAY (FOR 10 DAYS)
  3. PROGRAF [Interacting]
     Active Substance: TACROLIMUS\TACROLIMUS ANHYDROUS
     Indication: RENAL DISORDER
     Dosage: UNK
  4. PROGRAF [Interacting]
     Active Substance: TACROLIMUS\TACROLIMUS ANHYDROUS
     Dosage: 3.5 MG, DAILY; (2 MG MORNING AND 1.5 MG EVENING)
     Route: 048
  5. PROGRAF [Interacting]
     Active Substance: TACROLIMUS\TACROLIMUS ANHYDROUS
     Dosage: 1.5 MG, 2X/DAY
     Route: 048

REACTIONS (11)
  - Drug interaction [Unknown]
  - Toxicity to various agents [Unknown]
  - Muscle twitching [Unknown]
  - Bronchitis [Unknown]
  - Nervous system disorder [Recovering/Resolving]
  - Dysuria [Unknown]
  - Renal failure [Unknown]
  - Immunosuppressant drug level increased [Unknown]
  - Fungal infection [Unknown]
  - Diplegia [Recovered/Resolved]
  - Pneumonia [Unknown]

NARRATIVE: CASE EVENT DATE: 201806
